FAERS Safety Report 6375670-1 (Version None)
Quarter: 2009Q3

REPORT INFORMATION
  Report Type: 
  Country: None (occurrence: None)
  Receive Date: 20090918
  Receipt Date: 20090918
  Transmission Date: 20100115
  Serious: Yes (Life-Threatening)
  Sender: FDA-Public Use
  Company Number: None

PATIENT
  Age: 28 Year
  Sex: Male
  Weight: 84.73 kg

DRUGS (1)
  1. TOPOSAR [Suspect]
     Indication: TESTIS CANCER
     Dosage: 200MG DAILY IV BOLUS
     Route: 040
     Dates: start: 20090910, end: 20090910

REACTIONS (5)
  - BURNING SENSATION [None]
  - DYSPNOEA [None]
  - HYPERHIDROSIS [None]
  - INFUSION RELATED REACTION [None]
  - SKIN DISCOLOURATION [None]
